FAERS Safety Report 15041275 (Version 1)
Quarter: 2018Q2

REPORT INFORMATION
  Report Type: Spontaneous
  Country: US (occurrence: US)
  Receive Date: 20180621
  Receipt Date: 20180621
  Transmission Date: 20180711
  Serious: Yes (Other)
  Sender: FDA-Public Use
  Company Number: US-OCTA-LIT17618US

PATIENT

DRUGS (1)
  1. HUMAN NORMAL IMMUNOGLOBULIN  (IV) [Suspect]
     Active Substance: HUMAN IMMUNOGLOBULIN G
     Indication: DERMATOMYOSITIS
     Route: 042

REACTIONS (1)
  - Cerebrovascular disorder [Unknown]
